FAERS Safety Report 9249228 (Version 1)
Quarter: 2013Q2

REPORT INFORMATION
  Report Type: Spontaneous
  Country: HR (occurrence: HR)
  Receive Date: 20130423
  Receipt Date: 20130423
  Transmission Date: 20140414
  Serious: Yes (Other)
  Sender: FDA-Public Use
  Company Number: HR-TEVA-397920ISR

PATIENT
  Sex: Male
  Weight: 78 kg

DRUGS (6)
  1. OXALIPLATIN PLIVA [Suspect]
     Indication: RECTAL CANCER METASTATIC
     Route: 048
     Dates: start: 20130311, end: 20130311
  2. GLUKOZA [Concomitant]
     Dosage: 500 ML DAILY;
     Route: 042
     Dates: start: 20130311, end: 20130311
  3. KALCIJ FOLINAT PLIVA [Concomitant]
     Indication: RECTAL CANCER METASTATIC
     Dosage: 370 MILLIGRAM DAILY;
     Dates: start: 20130311, end: 20130311
  4. TARKA [Concomitant]
     Dosage: 1 DOSAGE FORMS DAILY; DOSAGE FORM IS UNKNOWN
     Route: 048
  5. TRANSTEC [Concomitant]
     Dosage: 70 MICROGRAM DAILY;
     Route: 062
  6. DIKLOFENAK [Concomitant]
     Route: 048

REACTIONS (4)
  - Bronchospasm [Recovered/Resolved]
  - Hypertensive crisis [Recovered/Resolved]
  - Dyspnoea [Recovered/Resolved]
  - Chest discomfort [Recovered/Resolved]
